FAERS Safety Report 4744496-4 (Version None)
Quarter: 2005Q3

REPORT INFORMATION
  Report Type: 
  Country: None (occurrence: None)
  Receive Date: 20050811
  Receipt Date: 20050801
  Transmission Date: 20060218
  Serious: Yes (Other)
  Sender: FDA-Public Use
  Company Number: 2005AP000600

PATIENT
  Age: 57 Year
  Sex: Female

DRUGS (7)
  1. GABAPENTIN [Suspect]
     Indication: INTENTIONAL MISUSE
     Dosage: 300 MG; BID; PO
     Route: 048
     Dates: start: 20050701
  2. GABAPENTIN [Suspect]
     Indication: MIGRAINE
     Dosage: 300 MG; BID; PO
     Route: 048
     Dates: start: 20050701
  3. ZOMIG [Concomitant]
  4. AMITRIPTYLINE HCL [Concomitant]
  5. FOSAMAX ONCE WEEKLY [Concomitant]
  6. AMBIEN [Concomitant]
  7. MULTI-VITAMINS [Concomitant]

REACTIONS (1)
  - AMNESIA [None]
